FAERS Safety Report 10642666 (Version 1)
Quarter: 2014Q4

REPORT INFORMATION
  Report Type: Spontaneous
  Country: US (occurrence: None)
  Receive Date: 20141208
  Receipt Date: 20141208
  Transmission Date: 20150529
  Serious: Yes (Life-Threatening)
  Sender: FDA-Public Use
  Company Number: None

PATIENT
  Age: 81 Year
  Sex: Male
  Weight: 83.92 kg

DRUGS (3)
  1. ZESTRIL [Suspect]
     Active Substance: LISINOPRIL
     Indication: HYPERTENSION
     Dosage: 1 PILL
     Route: 048
     Dates: start: 20141124, end: 20141130
  2. ZESTRIL [Suspect]
     Active Substance: LISINOPRIL
     Indication: CONGESTIVE CARDIOMYOPATHY
     Dosage: 1 PILL
     Route: 048
     Dates: start: 20141124, end: 20141130
  3. ZESTRIL [Suspect]
     Active Substance: LISINOPRIL
     Indication: PRODUCT USED FOR UNKNOWN INDICATION
     Dosage: 1 PILL
     Route: 048
     Dates: start: 20141124, end: 20141130

REACTIONS (6)
  - Productive cough [None]
  - Cough [None]
  - Middle insomnia [None]
  - Paranasal sinus hypersecretion [None]
  - Suffocation feeling [None]
  - Dyspnoea [None]

NARRATIVE: CASE EVENT DATE: 20141202
